FAERS Safety Report 11338287 (Version 1)
Quarter: 2015Q3

REPORT INFORMATION
  Report Type: Spontaneous
  Country: US (occurrence: US)
  Receive Date: 20150803
  Receipt Date: 20150803
  Transmission Date: 20151125
  Serious: No
  Sender: FDA-Public Use
  Company Number: US-ELI_LILLY_AND_COMPANY-US200706002794

PATIENT
  Sex: Male

DRUGS (1)
  1. STRATTERA [Suspect]
     Active Substance: ATOMOXETINE HYDROCHLORIDE
     Route: 048
     Dates: start: 2002, end: 200705

REACTIONS (9)
  - Vision blurred [Unknown]
  - Feeling abnormal [Unknown]
  - Limb discomfort [Unknown]
  - Somnolence [Unknown]
  - Respiratory disorder [Unknown]
  - Anxiety [Recovering/Resolving]
  - Dizziness [Unknown]
  - Heart rate increased [Recovering/Resolving]
  - Blood pressure increased [Recovering/Resolving]

NARRATIVE: CASE EVENT DATE: 20070612
